FAERS Safety Report 8012144-6 (Version None)
Quarter: 2011Q4

REPORT INFORMATION
  Report Type: 
  Country: None (occurrence: None)
  Receive Date: 20111228
  Receipt Date: 20111221
  Transmission Date: 20120403
  Serious: No
  Sender: FDA-Public Use
  Company Number: US-B.I. PHARMACEUTICALS,INC./RIDGEFIELD-2011-BP-25093BP

PATIENT
  Sex: Female

DRUGS (17)
  1. ADVAIR DISKUS 100/50 [Concomitant]
     Indication: CHRONIC OBSTRUCTIVE PULMONARY DISEASE
     Route: 055
     Dates: start: 20110501
  2. VITAMIN B COMPLEX CAP [Concomitant]
     Indication: ROUTINE HEALTH MAINTENANCE
  3. FOSAMAX [Concomitant]
     Indication: OSTEOPOROSIS
     Route: 048
  4. SPIRIVA [Suspect]
     Indication: CHRONIC OBSTRUCTIVE PULMONARY DISEASE
     Dosage: 18 MCG
     Route: 055
     Dates: start: 20110603
  5. XANAX [Concomitant]
     Indication: ANXIETY
     Dosage: 0.25 MG
     Route: 048
     Dates: start: 20090101
  6. XANAX [Concomitant]
     Indication: PANIC ATTACK
  7. ASPIRIN [Concomitant]
     Indication: PROPHYLAXIS
     Route: 048
  8. SIMVASTATIN [Concomitant]
     Indication: BLOOD CHOLESTEROL INCREASED
     Dosage: 40 MG
     Route: 048
     Dates: start: 20060101
  9. EYE DROPS [Concomitant]
     Indication: DRY EYE
  10. MULTI-VITAMINS [Concomitant]
     Indication: SUPPLEMENTATION THERAPY
     Route: 048
     Dates: start: 20060101
  11. CALCIUM ACETATE [Concomitant]
     Indication: SUPPLEMENTATION THERAPY
     Route: 048
  12. EXCEDRIN (MIGRAINE) [Concomitant]
     Indication: HEADACHE
     Route: 048
  13. CERTRALINE [Concomitant]
     Indication: DEPRESSION
     Dosage: 50 MG
     Route: 048
     Dates: start: 20090101
  14. MULTI-VITAMINS [Concomitant]
     Indication: ROUTINE HEALTH MAINTENANCE
  15. CERTRALINE [Concomitant]
     Indication: PANIC ATTACK
  16. VITAMIN B COMPLEX CAP [Concomitant]
     Indication: SUPPLEMENTATION THERAPY
     Route: 048
     Dates: start: 20060101
  17. ASPIRIN [Concomitant]
     Indication: ROUTINE HEALTH MAINTENANCE
     Dosage: 81 MG
     Route: 048
     Dates: start: 20060101

REACTIONS (1)
  - GLOSSODYNIA [None]
